FAERS Safety Report 8958900 (Version 1)
Quarter: 2012Q4

REPORT INFORMATION
  Report Type: 
  Country: US (occurrence: US)
  Receive Date: 20121211
  Receipt Date: 20121211
  Transmission Date: 20130627
  Serious: No
  Sender: FDA-Public Use
  Company Number: US-009507513-2012SP036141

PATIENT
  Sex: Female
  Weight: 70.3 kg

DRUGS (7)
  1. CLARITIN [Suspect]
     Indication: URTICARIA
     Dosage: UNK, tid
     Route: 048
     Dates: start: 201203, end: 201208
  2. CLARITIN [Suspect]
     Indication: MEDICAL OBSERVATION
  3. METHOTREXATE [Concomitant]
     Indication: MULTIPLE SCLEROSIS
     Dosage: UNK, Unknown
  4. FLUTICASONE [Concomitant]
     Indication: PRODUCT USED FOR UNKNOWN INDICATION
     Dosage: UNK, Unknown
  5. ACIPHEX [Concomitant]
     Indication: DIVERTICULITIS
     Dosage: UNK, Unknown
  6. WELCHOL [Concomitant]
     Indication: IRRITABLE BOWEL SYNDROME
     Dosage: UNK, Unknown
  7. CIMZIA [Concomitant]
     Indication: PRODUCT USED FOR UNKNOWN INDICATION
     Dosage: UNK, Unknown

REACTIONS (4)
  - Diarrhoea [Recovered/Resolved]
  - No therapeutic response [Unknown]
  - Inappropriate schedule of drug administration [Unknown]
  - Off label use [Unknown]
